FAERS Safety Report 6337120-0 (Version None)
Quarter: 2009Q3

REPORT INFORMATION
  Report Type: 
  Country: None (occurrence: None)
  Receive Date: 20090831
  Receipt Date: 20090817
  Transmission Date: 20100115
  Serious: Yes (Hospitalization)
  Sender: FDA-Public Use
  Company Number: 2008AL011331

PATIENT
  Age: 62 Year
  Sex: Male

DRUGS (28)
  1. DIGOXIN [Suspect]
     Indication: HEART RATE IRREGULAR
     Dosage: PO
     Route: 048
  2. ASPIRIN [Concomitant]
  3. AMIODARONE [Concomitant]
  4. PLAVIX [Concomitant]
  5. TOPROL-XL [Concomitant]
  6. LIPITOR [Concomitant]
  7. ALTACE [Concomitant]
  8. PERCOCET [Concomitant]
  9. LASIX [Concomitant]
  10. PANTOPRAZOLE SODIUM [Concomitant]
  11. ENOXAPARIN [Concomitant]
  12. TYLENOL (CAPLET) [Concomitant]
  13. METOPROLOL [Concomitant]
  14. PROMETHAZINE [Concomitant]
  15. ZOLPIDEM [Concomitant]
  16. HYDROCODONE [Concomitant]
  17. NEXIUM [Concomitant]
  18. AMBIEN [Concomitant]
  19. KETOPROFEN [Concomitant]
  20. DIAZEPAM [Concomitant]
  21. TUSSINAL [Concomitant]
  22. LEVAQUIN [Concomitant]
  23. SINGULAIR [Concomitant]
  24. RAMIPRIL [Concomitant]
  25. GABAPENTIN [Concomitant]
  26. IBUPROFEN [Concomitant]
  27. LOVENOX [Concomitant]
  28. CARDIZEM [Concomitant]

REACTIONS (14)
  - ABASIA [None]
  - ANGINA UNSTABLE [None]
  - ASTHENIA [None]
  - ATRIAL FIBRILLATION [None]
  - CARDIOACTIVE DRUG LEVEL ABOVE THERAPEUTIC [None]
  - COLD SWEAT [None]
  - CORONARY ARTERY DISEASE [None]
  - HEART RATE IRREGULAR [None]
  - HYPOPHAGIA [None]
  - INCORRECT DOSE ADMINISTERED [None]
  - INJURY [None]
  - PALPITATIONS [None]
  - THERAPEUTIC AGENT TOXICITY [None]
  - VISUAL IMPAIRMENT [None]
